FAERS Safety Report 16212468 (Version 2)
Quarter: 2019Q2

REPORT INFORMATION
  Report Type: Spontaneous
  Country: US (occurrence: US)
  Receive Date: 20190418
  Receipt Date: 20190501
  Transmission Date: 20190711
  Serious: No
  Sender: FDA-Public Use
  Company Number: US-PFIZER INC-2019162767

PATIENT
  Age: 46 Year
  Sex: Female

DRUGS (1)
  1. BOSULIF [Suspect]
     Active Substance: BOSUTINIB MONOHYDRATE
     Dosage: 500 MG, ONCE DAILY
     Dates: start: 20190408

REACTIONS (3)
  - Decreased appetite [Unknown]
  - Diarrhoea [Recovering/Resolving]
  - Platelet count decreased [Unknown]
